FAERS Safety Report 20907220 (Version 5)
Quarter: 2023Q2

REPORT INFORMATION
  Report Type: Spontaneous
  Country: CA (occurrence: CA)
  Receive Date: 20220602
  Receipt Date: 20230412
  Transmission Date: 20230722
  Serious: Yes (Hospitalization, Other)
  Sender: FDA-Public Use
  Company Number: None

PATIENT
  Sex: Male

DRUGS (23)
  1. CITALOPRAM HYDROBROMIDE [Suspect]
     Active Substance: CITALOPRAM HYDROBROMIDE
     Indication: Psychotic disorder
  2. NORVIR [Suspect]
     Active Substance: RITONAVIR
     Indication: HIV infection
  3. NORVIR [Suspect]
     Active Substance: RITONAVIR
     Indication: Depression
  4. ATAZANAVIR [Suspect]
     Active Substance: ATAZANAVIR
     Indication: HIV infection
  5. BUPROPION [Suspect]
     Active Substance: BUPROPION
     Indication: Depression
  6. QUETIAPINE [Suspect]
     Active Substance: QUETIAPINE
     Indication: Depression
     Route: 048
  7. QUETIAPINE [Suspect]
     Active Substance: QUETIAPINE
     Indication: Bipolar disorder
  8. KALETRA [Suspect]
     Active Substance: LOPINAVIR\RITONAVIR
     Indication: HIV infection
  9. LAMIVUDINE [Suspect]
     Active Substance: LAMIVUDINE
     Indication: HIV infection
  10. ZOPICLONE [Suspect]
     Active Substance: ZOPICLONE
     Indication: Bipolar disorder
  11. SERTRALINE [Suspect]
     Active Substance: SERTRALINE HYDROCHLORIDE
     Indication: Bipolar disorder
  12. ISENTRESS [Suspect]
     Active Substance: RALTEGRAVIR POTASSIUM
     Indication: HIV infection
     Dosage: 800 MG, QD
  13. ISENTRESS [Suspect]
     Active Substance: RALTEGRAVIR POTASSIUM
     Dosage: UNK
  14. VALPROIC ACID [Suspect]
     Active Substance: VALPROIC ACID
     Indication: Bipolar disorder
  15. CLONAZEPAM [Suspect]
     Active Substance: CLONAZEPAM
     Indication: Bipolar disorder
  16. CLONAZEPAM [Suspect]
     Active Substance: CLONAZEPAM
     Indication: Depression
  17. SUSTIVA [Suspect]
     Active Substance: EFAVIRENZ
     Indication: HIV infection
     Dosage: 800 MG, QD
  18. ENFUVIRTIDE [Suspect]
     Active Substance: ENFUVIRTIDE
     Indication: HIV infection
  19. RISPERIDONE [Suspect]
     Active Substance: RISPERIDONE
     Indication: Depression
  20. VIREAD [Suspect]
     Active Substance: TENOFOVIR DISOPROXIL FUMARATE
     Indication: Product used for unknown indication
  21. RITONAVIR [Suspect]
     Active Substance: RITONAVIR
     Indication: Depression
  22. TENOFOVIR [Concomitant]
     Active Substance: TENOFOVIR
  23. EMTRIVA [Concomitant]
     Active Substance: EMTRICITABINE

REACTIONS (10)
  - Depression suicidal [Unknown]
  - Tearfulness [Unknown]
  - Psychomotor skills impaired [Unknown]
  - Psychiatric decompensation [Unknown]
  - Anxiety [Unknown]
  - Depressive symptom [Unknown]
  - Paranoia [Unknown]
  - Suicidal ideation [Unknown]
  - Psychotic disorder [Unknown]
  - Product use in unapproved indication [Unknown]
